FAERS Safety Report 20361509 (Version 2)
Quarter: 2022Q1

REPORT INFORMATION
  Report Type: Spontaneous
  Country: JP (occurrence: JP)
  Receive Date: 20220121
  Receipt Date: 20220218
  Transmission Date: 20220423
  Serious: No
  Sender: FDA-Public Use
  Company Number: JP-NOVARTISPH-NVSJ2022JP001159

PATIENT
  Age: 74 Year
  Sex: Female

DRUGS (2)
  1. ENTRESTO [Suspect]
     Active Substance: SACUBITRIL\VALSARTAN
     Indication: Hypertension
     Dosage: 100 MG
     Route: 048
     Dates: start: 20211218, end: 20220107
  2. ENTRESTO [Suspect]
     Active Substance: SACUBITRIL\VALSARTAN
     Dosage: 100 MG
     Route: 048
     Dates: start: 202201

REACTIONS (5)
  - Stomatitis [Recovered/Resolved]
  - Physical deconditioning [Recovered/Resolved]
  - Dysphonia [Recovered/Resolved]
  - Oropharyngeal pain [Recovered/Resolved]
  - Thirst [Recovered/Resolved]

NARRATIVE: CASE EVENT DATE: 20211230
